FAERS Safety Report 9704248 (Version 1)
Quarter: 2013Q4

REPORT INFORMATION
  Report Type: Spontaneous
  Country: US (occurrence: US)
  Receive Date: 20131122
  Receipt Date: 20131122
  Transmission Date: 20140711
  Serious: No
  Sender: FDA-Public Use
  Company Number: US-MYLANLABS-2013S1004653

PATIENT
  Age: 82 Year
  Sex: Female

DRUGS (2)
  1. AMLODIPINE BESILATE TABLETS [Suspect]
     Indication: BLOOD PRESSURE INCREASED
     Route: 048
     Dates: start: 2011
  2. LISINOPRIL TABLETS [Suspect]
     Indication: BLOOD PRESSURE INCREASED
     Route: 048
     Dates: start: 2011

REACTIONS (1)
  - Platelet count decreased [Not Recovered/Not Resolved]
